FAERS Safety Report 9994245 (Version 2)
Quarter: 2014Q1

REPORT INFORMATION
  Report Type: Spontaneous
  Country: PR (occurrence: PR)
  Receive Date: 20140310
  Receipt Date: 20140310
  Transmission Date: 20141002
  Serious: No
  Sender: FDA-Public Use
  Company Number: PR-BAXTER-2014BAX009209

PATIENT
  Sex: 0

DRUGS (4)
  1. 70% DEXTROSE INJECTION USP [Suspect]
     Indication: PRODUCT USED FOR UNKNOWN INDICATION
     Route: 065
     Dates: start: 20140130
  2. INTRALIPID I.V. FAT EMULSION 20%- [Suspect]
     Indication: PRODUCT USED FOR UNKNOWN INDICATION
     Route: 065
     Dates: start: 20140130
  3. STERILE WATER FOR INJECTION [Suspect]
     Indication: PRODUCT USED FOR UNKNOWN INDICATION
     Route: 065
     Dates: start: 20140130
  4. 10% TRAVASOL? (AMINO ACID) INJECTION [Suspect]
     Indication: PRODUCT USED FOR UNKNOWN INDICATION
     Route: 065
     Dates: start: 20140130

REACTIONS (3)
  - Wrong technique in drug usage process [Unknown]
  - Poor quality drug administered [Unknown]
  - No adverse event [Recovered/Resolved]
